FAERS Safety Report 6814909-2 (Version None)
Quarter: 2010Q3

REPORT INFORMATION
  Report Type: 
  Country: None (occurrence: None)
  Receive Date: 20100702
  Receipt Date: 20100625
  Transmission Date: 20110219
  Serious: Yes (Other)
  Sender: FDA-Public Use
  Company Number: US-ROCHE-711309

PATIENT
  Sex: Male

DRUGS (2)
  1. XELODA [Suspect]
     Indication: COLORECTAL CANCER
     Dosage: START DATE: AFTER NOVEMBER 2008
     Route: 048
     Dates: end: 20090101
  2. XELODA [Suspect]
     Dosage: INDICATION: METASTATIC COLORECTAL CANCER, 2000MG AT AM + 1500MG AT PM, 2 WEEKS ON/ 1 WEEK OFF
     Route: 048
     Dates: start: 20100611

REACTIONS (11)
  - ASTHENIA [None]
  - BLOOD TESTOSTERONE DECREASED [None]
  - DECREASED APPETITE [None]
  - DIARRHOEA [None]
  - DYSPEPSIA [None]
  - GASTRIC PERFORATION [None]
  - MALIGNANT NEOPLASM PROGRESSION [None]
  - RASH [None]
  - SUICIDAL IDEATION [None]
  - VITAMIN B12 DEFICIENCY [None]
  - WEIGHT DECREASED [None]
